FAERS Safety Report 18377268 (Version 1)
Quarter: 2020Q4

REPORT INFORMATION
  Report Type: Spontaneous
  Country: SE (occurrence: SE)
  Receive Date: 20201013
  Receipt Date: 20201013
  Transmission Date: 20210114
  Serious: Yes (Hospitalization)
  Sender: FDA-Public Use
  Company Number: SE-MYLANLABS-2020M1086370

PATIENT
  Age: 26 Year
  Sex: Female
  Weight: 126 kg

DRUGS (11)
  1. OXYCODONE [Suspect]
     Active Substance: OXYCODONE
     Indication: ANALGESIC THERAPY
     Route: 065
     Dates: start: 20200417
  2. BETAMETHASONE. [Suspect]
     Active Substance: BETAMETHASONE
     Indication: MATERNAL THERAPY TO ENHANCE FOETAL LUNG MATURITY
     Dosage: 12 MILLIGRAM
     Route: 030
     Dates: start: 20200418
  3. MORPHINE [Suspect]
     Active Substance: MORPHINE
     Indication: ANALGESIC THERAPY
     Dosage: 7.5 MILLIGRAM
     Route: 042
  4. ANTI-D IMMUNOGLOBULIN [Suspect]
     Active Substance: HUMAN RHO(D) IMMUNE GLOBULIN
     Indication: RHESUS ANTIGEN NEGATIVE
     Dosage: UNK
     Route: 030
     Dates: start: 202003
  5. CEFOTAXIME [Suspect]
     Active Substance: CEFOTAXIME SODIUM
     Indication: BACTERIAL INFECTION
     Dosage: 2 GRAM, TID THRICE DAILY
     Route: 042
     Dates: start: 20200422
  6. PARACETAMOL [Suspect]
     Active Substance: ACETAMINOPHEN
     Indication: ANALGESIC THERAPY
     Dosage: UNK
     Route: 065
     Dates: start: 20200417
  7. LEVOTHYROXINE. [Suspect]
     Active Substance: LEVOTHYROXINE
     Indication: HYPOTHYROIDISM
     Dosage: 150 MICROGRAM, QD
     Route: 065
  8. DALTEPARIN [Suspect]
     Active Substance: DALTEPARIN
     Indication: THROMBOSIS PROPHYLAXIS
     Dosage: 7500 UNITS, QD
     Route: 058
     Dates: start: 20200417
  9. BETAMETHASONE. [Suspect]
     Active Substance: BETAMETHASONE
     Dosage: 3 MILLIGRAM
     Route: 065
     Dates: start: 202004, end: 202004
  10. BETAMETHASONE. [Suspect]
     Active Substance: BETAMETHASONE
     Dosage: 4 MILLIGRAM
     Route: 065
     Dates: start: 202004, end: 202004
  11. BETAMETHASONE. [Suspect]
     Active Substance: BETAMETHASONE
     Indication: DYSPHAGIA
     Dosage: 6 MILLIGRAM
     Route: 065
     Dates: start: 202004, end: 202004

REACTIONS (5)
  - Somnolence [Recovered/Resolved]
  - Miosis [Recovered/Resolved]
  - Maternal exposure during pregnancy [Recovered/Resolved]
  - Lethargy [Recovered/Resolved]
  - Overdose [Recovered/Resolved]
